FAERS Safety Report 11199537 (Version 1)
Quarter: 2015Q2

REPORT INFORMATION
  Report Type: Other
  Country: DE (occurrence: DE)
  Receive Date: 20150618
  Receipt Date: 20150618
  Transmission Date: 20150821
  Serious: Yes (Hospitalization)
  Sender: FDA-Public Use
  Company Number: DE-MYLANLABS-2015M1018770

PATIENT

DRUGS (12)
  1. TOREM [Suspect]
     Active Substance: TORSEMIDE
     Dosage: 10 MG, QD (DAILY DOSE: 10 MG MILLGRAM(S) EVERY DAYS)
  2. TAMSULOSIN [Suspect]
     Active Substance: TAMSULOSIN
     Dosage: 0.4 MG, QD (DAILY DOSE: 0.4 MG MILLGRAM(S) EVERY DAYS)
  3. LYRICA [Suspect]
     Active Substance: PREGABALIN
     Dosage: 75 MG, BID (DAILY DOSE: 150 MG MILLGRAM(S) EVERY DAYS)
  4. FOLSAN [Suspect]
     Active Substance: FOLIC ACID
     Dosage: 1 DF, QD (DAILY DOSE: 1 DF DOSAGE FORM EVERY DAYS)
  5. OXYCODONE [Suspect]
     Active Substance: OXYCODONE
     Dosage: 10 MG, QD (DAILY DOSE: 10 MG MILLGRAM(S) EVERY DAYS)
  6. ARCOXIA [Suspect]
     Active Substance: ETORICOXIB
     Dosage: 1 DF, QD (DAILY DOSE: 1 DF DOSAGE FORM EVERY DAYS)
  7. JANUVIA [Suspect]
     Active Substance: SITAGLIPTIN PHOSPHATE
     Dosage: 25 MG, QD (DAILY DOSE: 25 MG MILLGRAM(S) EVERY DAYS)
  8. LANTUS [Suspect]
     Active Substance: INSULIN GLARGINE
     Dosage: 20 IU, QD (DAILY DOSE: 20 IU INTERNATIONAL UNIT(S) EVERY DAYS)
  9. VIGANTOLETTEN [Suspect]
     Active Substance: CHOLECALCIFEROL
     Dosage: 1000 IU, QD (DAILY DOSE: 1000 IU INTERNATIONAL UNIT(S) EVERY DAYS)
  10. OPIPRAMOL [Suspect]
     Active Substance: OPIPRAMOL
     Dosage: 50 MG, QD (DAILY DOSE: 50 MG MILLGRAM(S) EVERY DAYS)
  11. NOVAMIN-TROPFEN [Suspect]
     Active Substance: METAMIZOLE SODIUM
     Dosage: 40 GTT, QD (DAILY DOSE: 40 GTT DROP(S) EVERY DAYS)
  12. TILIDIN 40/4 [Suspect]
     Active Substance: NALOXONE HYDROCHLORIDE\TILIDINE HYDROCHLORIDE
     Dosage: 1 DF, QD (DAILY DOSE: 1 DF DOSAGE FORM EVERY DAYS)

REACTIONS (5)
  - Dizziness [Unknown]
  - Fatigue [Unknown]
  - Laceration [Unknown]
  - Fall [Unknown]
  - Upper limb fracture [Unknown]
